FAERS Safety Report 14039655 (Version 1)
Quarter: 2017Q4

REPORT INFORMATION
  Report Type: Spontaneous
  Country: DE (occurrence: DE)
  Receive Date: 20171004
  Receipt Date: 20171004
  Transmission Date: 20180321
  Serious: Yes (Other)
  Sender: FDA-Public Use
  Company Number: DE-009507513-1710DEU000435

PATIENT
  Age: 88 Year
  Sex: Female

DRUGS (5)
  1. ALLOPURINOL. [Concomitant]
     Active Substance: ALLOPURINOL
     Dosage: UNK
  2. CORTISONE ACETATE. [Concomitant]
     Active Substance: CORTISONE ACETATE
  3. PANTOPRAZOLE [Concomitant]
     Active Substance: PANTOPRAZOLE
  4. BISOPROLOL [Concomitant]
     Active Substance: BISOPROLOL
  5. DORZOLAMIDE HYDROCHLORIDE. [Suspect]
     Active Substance: DORZOLAMIDE HYDROCHLORIDE
     Indication: GLAUCOMA
     Dosage: 1 GTT, BID
     Route: 047

REACTIONS (8)
  - Off label use [Unknown]
  - Blindness [Not Recovered/Not Resolved]
  - Drug dispensing error [Unknown]
  - Intraocular pressure increased [Not Recovered/Not Resolved]
  - Eye haemorrhage [Not Recovered/Not Resolved]
  - Product storage error [Unknown]
  - Underdose [Unknown]
  - Drug ineffective [Unknown]
